FAERS Safety Report 19828180 (Version 1)
Quarter: 2021Q3

REPORT INFORMATION
  Report Type: Spontaneous
  Country: DE (occurrence: DE)
  Receive Date: 20210914
  Receipt Date: 20210914
  Transmission Date: 20211014
  Serious: Yes (Hospitalization, Other)
  Sender: FDA-Public Use
  Company Number: DE-TEVA-2021-DE-1951466

PATIENT
  Age: 38 Year
  Sex: Male
  Weight: 140 kg

DRUGS (2)
  1. HYDROCHLOROTHIAZID/IRBESARTAN [Suspect]
     Active Substance: HYDROCHLOROTHIAZIDE\IRBESARTAN
     Dosage: 1 DOSAGE FORMS DAILY; 12.5|300 MG, 1?0?0?0
     Route: 048
  2. METFORMIN [Suspect]
     Active Substance: METFORMIN HYDROCHLORIDE
     Dosage: 2000 MILLIGRAM DAILY; 1?0?1?0
     Route: 048

REACTIONS (3)
  - Haematuria [Unknown]
  - Acute kidney injury [Unknown]
  - Pain [Unknown]
